FAERS Safety Report 14961879 (Version 1)
Quarter: 2018Q2

REPORT INFORMATION
  Report Type: Spontaneous
  Country: CA (occurrence: CA)
  Receive Date: 20180601
  Receipt Date: 20180601
  Transmission Date: 20180711
  Serious: Yes (Other)
  Sender: FDA-Public Use
  Company Number: CA-ROCHE-2130989

PATIENT
  Sex: Male

DRUGS (5)
  1. RITUXAN [Suspect]
     Active Substance: RITUXIMAB
     Indication: NON-HODGKIN^S LYMPHOMA
     Dosage: ***RECEIVED OUTSIDE RPAP
     Route: 042
  2. SYNTHROID [Concomitant]
     Active Substance: LEVOTHYROXINE SODIUM
     Route: 065
  3. XARELTO [Concomitant]
     Active Substance: RIVAROXABAN
     Route: 065
  4. OZONE [Concomitant]
     Active Substance: OZONE
     Route: 065
  5. OXYGEN. [Concomitant]
     Active Substance: OXYGEN

REACTIONS (7)
  - Anaemia [Unknown]
  - Ventricular extrasystoles [Not Recovered/Not Resolved]
  - Leukopenia [Unknown]
  - Jugular vein thrombosis [Not Recovered/Not Resolved]
  - Beta 2 microglobulin increased [Unknown]
  - Haemangioma of liver [Unknown]
  - Bundle branch block right [Not Recovered/Not Resolved]
